FAERS Safety Report 8848571 (Version 2)
Quarter: 2012Q4

REPORT INFORMATION
  Report Type: 
  Country: JP (occurrence: JP)
  Receive Date: 20121018
  Receipt Date: 20121205
  Transmission Date: 20130627
  Serious: Yes (Hospitalization)
  Sender: FDA-Public Use
  Company Number: JP-GLAXOSMITHKLINE-B0834589A

PATIENT
  Age: 69 Year
  Sex: Male

DRUGS (6)
  1. AVOLVE [Suspect]
     Indication: BENIGN PROSTATIC HYPERPLASIA
     Dosage: .5MG Per day
     Route: 048
     Dates: start: 201010, end: 201111
  2. REZALTAS [Concomitant]
     Indication: HYPERTENSION
     Dosage: 1IUAX Per day
     Route: 048
     Dates: start: 201201
  3. ARTIONE [Concomitant]
     Dosage: 10MG Per day
     Route: 048
     Dates: start: 201201
  4. LIVALO [Concomitant]
     Indication: DYSLIPIDAEMIA
     Dosage: 2MG Per day
     Route: 048
     Dates: start: 201007
  5. URIEF [Concomitant]
     Dosage: 4MG Per day
     Route: 048
     Dates: start: 201111
  6. BAYASPIRIN [Concomitant]
     Indication: AORTIC ANEURYSM
     Dosage: 100MG Per day
     Route: 048

REACTIONS (6)
  - Pneumonia [Recovered/Resolved]
  - Upper respiratory tract inflammation [Recovered/Resolved]
  - Bronchitis [Recovered/Resolved]
  - Bronchitis [Recovered/Resolved]
  - Bronchitis [Recovered/Resolved]
  - Upper respiratory tract inflammation [Recovered/Resolved]
